FAERS Safety Report 5840042-2 (Version None)
Quarter: 2008Q3

REPORT INFORMATION
  Report Type: 
  Country: None (occurrence: None)
  Receive Date: 20080811
  Receipt Date: 20071126
  Transmission Date: 20090109
  Serious: Yes (Other)
  Sender: FDA-Public Use
  Company Number: US-BAYER-200713315BWH

PATIENT

DRUGS (1)
  1. TRASYLOL [Suspect]
     Indication: HEART VALVE OPERATION
     Route: 042
     Dates: start: 20070919

REACTIONS (2)
  - BLOOD CREATININE INCREASED [None]
  - HYPERSENSITIVITY [None]
